FAERS Safety Report 9648123 (Version 1)
Quarter: 2013Q4

REPORT INFORMATION
  Report Type: Spontaneous
  Country: DK (occurrence: DK)
  Receive Date: 20131028
  Receipt Date: 20131028
  Transmission Date: 20140711
  Serious: Yes (Hospitalization)
  Sender: FDA-Public Use
  Company Number: PHHY2013DK119970

PATIENT
  Age: 71 Year
  Sex: Female

DRUGS (2)
  1. ZOMETA [Suspect]
     Indication: METASTASES TO BONE
     Dosage: 4 MG/100 ML
     Route: 042
     Dates: start: 20100302
  2. ALENDRONAT ARROW [Suspect]
     Indication: OSTEOPOROSIS
     Dosage: 70 MG, QW (ONCE WEEKLY)
     Route: 048
     Dates: start: 2007, end: 2008

REACTIONS (1)
  - Osteonecrosis of jaw [Not Recovered/Not Resolved]
